FAERS Safety Report 9837171 (Version 2)
Quarter: 2014Q1

REPORT INFORMATION
  Report Type: Spontaneous
  Country: US (occurrence: None)
  Receive Date: 20131127
  Receipt Date: 20140228
  Transmission Date: 20141002
  Serious: Yes (Other)
  Sender: FDA-Public Use
  Company Number: 224330

PATIENT
  Age: 57 Year
  Sex: Female

DRUGS (1)
  1. PICATO (0.015 %, GEL) [Suspect]
     Indication: ACTINIC KERATOSIS
     Route: 061
     Dates: start: 20131015, end: 20131017

REACTIONS (6)
  - Application site erythema [None]
  - Application site erosion [None]
  - Application site exfoliation [None]
  - Application site scab [None]
  - Drug administered at inappropriate site [None]
  - Accidental exposure to product [None]
